FAERS Safety Report 10434739 (Version 1)
Quarter: 2014Q2

REPORT INFORMATION
  Report Type: Spontaneous
  Country: US (occurrence: None)
  Receive Date: 20140514
  Receipt Date: 20140514
  Transmission Date: 20141212
  Serious: Yes (Other)
  Sender: FDA-Public Use
  Company Number: 092081U

PATIENT
  Sex: 0

DRUGS (3)
  1. CERTOLIZUMAB PEGOL [Suspect]
  2. INFLIXIMAB [Concomitant]
  3. ADALIMUMAB [Concomitant]

REACTIONS (1)
  - Hypersensitivity [None]
